FAERS Safety Report 9904581 (Version 2)
Quarter: 2014Q2

REPORT INFORMATION
  Report Type: Spontaneous
  Country: US (occurrence: US)
  Receive Date: 20140218
  Receipt Date: 20140411
  Transmission Date: 20141212
  Serious: No
  Sender: FDA-Public Use
  Company Number: US-PFIZER INC-2014044573

PATIENT
  Age: 60 Year
  Sex: Female

DRUGS (7)
  1. MEDROL [Suspect]
     Indication: RASH
     Dosage: UNK
     Route: 048
     Dates: start: 2014, end: 2014
  2. MEDROL [Suspect]
     Indication: URTICARIA
  3. HYDROXYCHLOROQUINE [Concomitant]
     Indication: CUTANEOUS LUPUS ERYTHEMATOSUS
     Dosage: 200 MG, 2X/DAY
  4. CYCLOBENZAPRINE [Concomitant]
     Dosage: 5 MG, HS
  5. PRAVACHOL [Concomitant]
     Dosage: 40 MG, 1X/DAY
  6. TENORETIC [Concomitant]
     Dosage: ATENOLOL (50MG), CHLORTALIDONE (25MG)
  7. ESTRADIOL [Concomitant]
     Dosage: 0.5 MG, 1X/DAY

REACTIONS (1)
  - Drug ineffective [Unknown]
